FAERS Safety Report 10598575 (Version 1)
Quarter: 2014Q4

REPORT INFORMATION
  Report Type: Spontaneous
  Country: US (occurrence: None)
  Receive Date: 20141119
  Receipt Date: 20141119
  Transmission Date: 20150529
  Serious: No
  Sender: FDA-Public Use
  Company Number: 1000071584

PATIENT
  Age: 73 Year
  Sex: Male

DRUGS (1)
  1. TUDORZA PRESSAIR [Suspect]
     Active Substance: ACLIDINIUM BROMIDE
     Indication: BRONCHITIS
     Dosage: 800 MCG (400 MCG,2 IN 1 D),RESPIRATORY (INHALATION)
     Route: 055
     Dates: start: 2014, end: 2014

REACTIONS (2)
  - Off label use [None]
  - Dysuria [None]

NARRATIVE: CASE EVENT DATE: 2014
